FAERS Safety Report 9360458 (Version 3)
Quarter: 2013Q3

REPORT INFORMATION
  Report Type: Spontaneous
  Country: US (occurrence: US)
  Receive Date: 20130621
  Receipt Date: 20130820
  Transmission Date: 20140515
  Serious: Yes (Hospitalization)
  Sender: FDA-Public Use
  Company Number: US-JNJFOC-20130605235

PATIENT
  Sex: Male

DRUGS (2)
  1. ZYTIGA [Suspect]
     Indication: PROSTATE CANCER
     Route: 048
     Dates: start: 20130126
  2. PREDNISONE [Suspect]
     Indication: PROSTATE CANCER
     Route: 048

REACTIONS (4)
  - Dehydration [Recovering/Resolving]
  - Blood glucose increased [Recovering/Resolving]
  - Atrial fibrillation [Recovering/Resolving]
  - Decreased appetite [Recovering/Resolving]
